FAERS Safety Report 9343119 (Version 1)
Quarter: 2013Q2

REPORT INFORMATION
  Report Type: Spontaneous
  Country: DE (occurrence: DE)
  Receive Date: 20130611
  Receipt Date: 20130611
  Transmission Date: 20140414
  Serious: Yes (Congenital Anomaly, Other)
  Sender: FDA-Public Use
  Company Number: DE-MYLANLABS-2013S1011606

PATIENT
  Age: 0 Year
  Sex: Male
  Weight: 1.77 kg

DRUGS (2)
  1. SERTRALINE [Suspect]
     Dosage: 50 [MG/D (-25) ]
     Route: 064
  2. FEMIBION [Concomitant]
     Indication: PROPHYLAXIS OF NEURAL TUBE DEFECT
     Route: 064

REACTIONS (5)
  - Haemangioma congenital [Unknown]
  - Naevus flammeus [Unknown]
  - Exposure during pregnancy [Recovered/Resolved]
  - Small for dates baby [Recovered/Resolved]
  - Feeding disorder neonatal [Recovered/Resolved]
